FAERS Safety Report 9300225 (Version 1)
Quarter: 2013Q2

REPORT INFORMATION
  Report Type: Spontaneous
  Country: DE (occurrence: DE)
  Receive Date: 20130521
  Receipt Date: 20130521
  Transmission Date: 20140414
  Serious: Yes (Hospitalization)
  Sender: FDA-Public Use
  Company Number: PHHY2013DE048774

PATIENT
  Age: 28 Year
  Sex: Male

DRUGS (5)
  1. CERTICAN [Suspect]
     Indication: LIVER TRANSPLANT REJECTION
  2. RITUXIMAB [Concomitant]
     Dosage: 375 MG/M2, UNK
  3. ATG S [Concomitant]
  4. PROGRAF [Concomitant]
  5. MYFORTIC [Concomitant]

REACTIONS (2)
  - Gastroenteritis [Unknown]
  - Gastrointestinal haemorrhage [Unknown]
